FAERS Safety Report 19759673 (Version 1)
Quarter: 2021Q3

REPORT INFORMATION
  Report Type: Report from Study
  Country: US (occurrence: US)
  Receive Date: 20210830
  Receipt Date: 20210830
  Transmission Date: 20211014
  Serious: Yes (Other)
  Sender: FDA-Public Use
  Company Number: US-SA-2021SA048305

PATIENT
  Age: 40 Year
  Sex: Female

DRUGS (4)
  1. JENCYCLA [Concomitant]
     Active Substance: NORETHINDRONE
     Indication: ORAL CONTRACEPTION
     Dosage: UNK
     Dates: end: 202104
  2. NOREPHEDRINE HCL [Concomitant]
     Active Substance: PHENYLPROPANOLAMINE HYDROCHLORIDE
     Dosage: UNK
  3. TERIFLUNOMIDE. [Suspect]
     Active Substance: TERIFLUNOMIDE
     Indication: MULTIPLE SCLEROSIS
     Dosage: 14 MG, QD
     Route: 048
     Dates: start: 20210206
  4. NORTRIPTYLINE [Concomitant]
     Active Substance: NORTRIPTYLINE
     Dosage: UNK
     Dates: end: 202106

REACTIONS (2)
  - Unevaluable event [Unknown]
  - Hypokalaemia [Unknown]

NARRATIVE: CASE EVENT DATE: 2021
